FAERS Safety Report 8536424-0 (Version None)
Quarter: 2012Q3

REPORT INFORMATION
  Report Type: 
  Country: None (occurrence: None)
  Receive Date: 20120712
  Receipt Date: 20120704
  Transmission Date: 20120928
  Serious: Yes (Other)
  Sender: FDA-Public Use
  Company Number: 2012032808

PATIENT
  Sex: Male

DRUGS (1)
  1. PRIVIGEN [Suspect]
     Indication: CHRONIC INFLAMMATORY DEMYELINATING POLYRADICULONEUROPATHY
     Dosage: , EVERY 4 WEEKS; 100MG/ML, INTRAVENOUS (NOT OTHERWISE SPECIFIED)
     Route: 042
     Dates: start: 20120301, end: 20120601

REACTIONS (3)
  - OFF LABEL USE [None]
  - DERMATITIS ALLERGIC [None]
  - SKIN EXFOLIATION [None]
